FAERS Safety Report 7553407-8 (Version None)
Quarter: 2011Q2

REPORT INFORMATION
  Report Type: 
  Country: None (occurrence: None)
  Receive Date: 20110617
  Receipt Date: 20110606
  Transmission Date: 20111010
  Serious: Yes (Disabling, Other)
  Sender: FDA-Public Use
  Company Number: US-SHIRE-ALL1-2011-01338

PATIENT
  Sex: Female
  Weight: 71 kg

DRUGS (1)
  1. VPRIV [Suspect]
     Indication: GAUCHER'S DISEASE
     Dosage: 4200 IU, UNKNOWN
     Route: 041
     Dates: start: 20110302, end: 20110416

REACTIONS (4)
  - RASH [None]
  - PRURITUS [None]
  - SWELLING [None]
  - INFUSION RELATED REACTION [None]
